FAERS Safety Report 7490897-3 (Version None)
Quarter: 2011Q2

REPORT INFORMATION
  Report Type: 
  Country: None (occurrence: None)
  Receive Date: 20110517
  Receipt Date: 20110517
  Transmission Date: 20111010
  Serious: Yes (Life-Threatening, Hospitalization, Other)
  Sender: FDA-Public Use
  Company Number: None

PATIENT
  Age: 37 Year
  Sex: Female
  Weight: 97.5234 kg

DRUGS (1)
  1. NORGESTIMATE AND ETHINYL ESTRADIOL [Suspect]
     Dosage: ONE PILL ONCE EA DAY PO
     Route: 048

REACTIONS (6)
  - GASTRIC DISORDER [None]
  - IMPAIRED WORK ABILITY [None]
  - ECONOMIC PROBLEM [None]
  - THROMBOSIS [None]
  - BLOOD PRESSURE INCREASED [None]
  - PULMONARY THROMBOSIS [None]
